FAERS Safety Report 13045424 (Version 2)
Quarter: 2016Q4

REPORT INFORMATION
  Report Type: Spontaneous
  Country: US (occurrence: US)
  Receive Date: 20161220
  Receipt Date: 20161230
  Transmission Date: 20170207
  Serious: No
  Sender: FDA-Public Use
  Company Number: US-ALEXION PHARMACEUTICALS INC.-A201609863

PATIENT
  Sex: Male

DRUGS (3)
  1. SOLIRIS [Suspect]
     Active Substance: ECULIZUMAB
     Indication: PAROXYSMAL NOCTURNAL HAEMOGLOBINURIA
     Route: 042
  2. ARANESP [Concomitant]
     Active Substance: DARBEPOETIN ALFA
     Indication: PRODUCT USED FOR UNKNOWN INDICATION
     Route: 065
  3. VITAMIN B12 [Concomitant]
     Active Substance: CYANOCOBALAMIN
     Indication: PRODUCT USED FOR UNKNOWN INDICATION
     Route: 065

REACTIONS (19)
  - Bilirubin conjugated abnormal [Unknown]
  - Blood chloride decreased [Unknown]
  - Mean cell volume increased [Unknown]
  - Red blood cell count decreased [Unknown]
  - Glomerular filtration rate decreased [Unknown]
  - Blood uric acid abnormal [Unknown]
  - Blood magnesium abnormal [Unknown]
  - Haemoglobin decreased [Unknown]
  - Blood sodium decreased [Unknown]
  - Blood creatinine increased [Unknown]
  - Blood urea increased [Unknown]
  - Blood bilirubin abnormal [Unknown]
  - Protein total decreased [Unknown]
  - Blood lactate dehydrogenase abnormal [Unknown]
  - Blood phosphorus abnormal [Unknown]
  - Mean platelet volume decreased [Unknown]
  - Blood glucose abnormal [Unknown]
  - Mean cell haemoglobin increased [Unknown]
  - Haematocrit decreased [Unknown]
